FAERS Safety Report 6034579-3 (Version None)
Quarter: 2009Q1

REPORT INFORMATION
  Report Type: 
  Country: None (occurrence: None)
  Receive Date: 20090112
  Receipt Date: 20081225
  Transmission Date: 20090719
  Serious: Yes (Other)
  Sender: FDA-Public Use
  Company Number: CA-PFIZER INC-2008095157

PATIENT

DRUGS (1)
  1. CELEBREX [Suspect]
     Route: 048

REACTIONS (5)
  - ANAPHYLACTIC REACTION [None]
  - BLOOD PRESSURE DECREASED [None]
  - BRADYCARDIA [None]
  - DYSPNOEA [None]
  - OXYGEN SATURATION DECREASED [None]
